FAERS Safety Report 14069108 (Version 1)
Quarter: 2017Q4

REPORT INFORMATION
  Report Type: Spontaneous
  Country: SI (occurrence: SI)
  Receive Date: 20171010
  Receipt Date: 20171010
  Transmission Date: 20180321
  Serious: Yes (Life-Threatening, Hospitalization)
  Sender: FDA-Public Use
  Company Number: SI-TEVA-811349ACC

PATIENT
  Sex: Female

DRUGS (4)
  1. KVENTIAX 25 MG [Concomitant]
     Indication: DEPRESSION
     Dosage: 1 DOSAGE FORMS DAILY;
     Route: 048
  2. CONCOR 5 MG [Suspect]
     Active Substance: BISOPROLOL FUMARATE
     Indication: ATRIAL FIBRILLATION
     Dosage: 1 DOSAGE FORMS DAILY; IN THE MORNINGS
     Route: 048
  3. LANITPO 0.1 MG (METILDIGOXIN) [Suspect]
     Active Substance: METILDIGOXIN
     Indication: ATRIAL FIBRILLATION
     Dosage: 1 DOSAGE FORMS DAILY;
     Route: 048
  4. ELIQUIS [Concomitant]
     Active Substance: APIXABAN
     Indication: ATRIAL FIBRILLATION
     Dosage: 1 DOSAGE FORMS DAILY;
     Route: 048

REACTIONS (5)
  - Chest pain [Recovered/Resolved]
  - Fall [None]
  - Loss of consciousness [Recovered/Resolved]
  - Bradycardia [Recovered/Resolved]
  - Vertigo [Recovered/Resolved]
